FAERS Safety Report 8767071 (Version 1)
Quarter: 2012Q4

REPORT INFORMATION
  Report Type: 
  Country: GB (occurrence: GB)
  Receive Date: 20120904
  Receipt Date: 20120904
  Transmission Date: 20130627
  Serious: Yes (Hospitalization)
  Sender: FDA-Public Use
  Company Number: GB-PERRIGO-12GB007359

PATIENT
  Age: 48 Year
  Sex: Female
  Weight: 54.88 kg

DRUGS (2)
  1. NAPROXEN [Suspect]
     Indication: ARTHRALGIA
     Dosage: 250 mg, UNK
     Route: 048
     Dates: start: 20120801, end: 20120813
  2. IMODIUM [Concomitant]
     Indication: PRODUCT USED FOR UNKNOWN INDICATION
     Dosage: UNK
     Route: 065

REACTIONS (2)
  - Gastrointestinal haemorrhage [Recovering/Resolving]
  - Haemoglobin decreased [Unknown]
